FAERS Safety Report 10697148 (Version 1)
Quarter: 2015Q1

REPORT INFORMATION
  Report Type: Spontaneous
  Country: US (occurrence: None)
  Receive Date: 20150106
  Receipt Date: 20150106
  Transmission Date: 20150721
  Serious: Yes (Hospitalization)
  Sender: FDA-Public Use
  Company Number: HT-2014-064-0001

PATIENT
  Age: 57 Year
  Sex: Female

DRUGS (2)
  1. DIABETIC TUSSIN DM MAXIMUM STRENGTH [Suspect]
     Active Substance: DEXTROMETHORPHAN HYDROBROMIDE\GUAIFENESIN
     Indication: COUGH
     Route: 048
  2. LANTUS [Concomitant]
     Active Substance: INSULIN GLARGINE

REACTIONS (3)
  - Abasia [None]
  - Cerebrovascular accident [None]
  - Hallucination [None]

NARRATIVE: CASE EVENT DATE: 20141227
